FAERS Safety Report 7012817-8 (Version None)
Quarter: 2010Q3

REPORT INFORMATION
  Report Type: 
  Country: None (occurrence: None)
  Receive Date: 20100924
  Receipt Date: 20100914
  Transmission Date: 20110219
  Serious: Yes (Life-Threatening, Hospitalization)
  Sender: FDA-Public Use
  Company Number: B0674383A

PATIENT
  Sex: Female

DRUGS (1)
  1. ARIXTRA [Suspect]
     Indication: DEEP VEIN THROMBOSIS
     Dosage: 7.5MG PER DAY
     Route: 058
     Dates: start: 20100601, end: 20100722

REACTIONS (5)
  - COMA [None]
  - DECEREBRATION [None]
  - INCORRECT DRUG ADMINISTRATION DURATION [None]
  - MYDRIASIS [None]
  - SUBDURAL HAEMATOMA [None]
